FAERS Safety Report 21079032 (Version 2)
Quarter: 2022Q3

REPORT INFORMATION
  Report Type: Spontaneous
  Country: JP (occurrence: JP)
  Receive Date: 20220713
  Receipt Date: 20220909
  Transmission Date: 20221026
  Serious: Yes (Hospitalization, Other)
  Sender: FDA-Public Use
  Company Number: JP-PFIZER INC-PV202200017130

PATIENT
  Sex: Female

DRUGS (1)
  1. ENBREL [Suspect]
     Active Substance: ETANERCEPT
     Indication: Rheumatoid arthritis
     Dosage: UNK
     Route: 058

REACTIONS (8)
  - Hip surgery [Unknown]
  - Inappropriate schedule of product administration [Unknown]
  - Wrong technique in device usage process [Unknown]
  - Injury associated with device [Unknown]
  - Panic reaction [Unknown]
  - Wound haemorrhage [Recovered/Resolved]
  - Pain in extremity [Recovered/Resolved]
  - Peripheral swelling [Unknown]

NARRATIVE: CASE EVENT DATE: 20220401
